FAERS Safety Report 8590729-6 (Version None)
Quarter: 2012Q3

REPORT INFORMATION
  Report Type: 
  Country: None (occurrence: None)
  Receive Date: 20120731
  Receipt Date: 20120716
  Transmission Date: 20120928
  Serious: Yes (Death, Hospitalization)
  Sender: FDA-Public Use
  Company Number: 2012-01084

PATIENT
  Age: 85 Year
  Sex: Female

DRUGS (2)
  1. SIMVASTATIN [Suspect]
     Indication: PRODUCT USED FOR UNKNOWN INDICATION
     Dosage: 20 MG (UNKNOWN, DAILY), UNKNOWN
  2. VORICONAZOLE [Suspect]
     Indication: PRODUCT USED FOR UNKNOWN INDICATION
     Dosage: 400 MG (200 MG, 2 IN 1 D),

REACTIONS (6)
  - RESPIRATORY MUSCLE WEAKNESS [None]
  - RESPIRATORY FAILURE [None]
  - ALANINE AMINOTRANSFERASE INCREASED [None]
  - RHABDOMYOLYSIS [None]
  - DRUG INTERACTION [None]
  - ASPARTATE AMINOTRANSFERASE INCREASED [None]
